FAERS Safety Report 12566313 (Version 2)
Quarter: 2016Q3

REPORT INFORMATION
  Report Type: Report from Study
  Country: US (occurrence: US)
  Receive Date: 20160718
  Receipt Date: 20160822
  Transmission Date: 20161109
  Serious: Yes (Hospitalization, Other)
  Sender: FDA-Public Use
  Company Number: US-AMGEN-USASL2016090328

PATIENT
  Age: 74 Year
  Sex: Female

DRUGS (1)
  1. PROLIA [Suspect]
     Active Substance: DENOSUMAB
     Indication: OSTEOPOROSIS POSTMENOPAUSAL
     Dosage: UNK
     Route: 065

REACTIONS (11)
  - Myocardial infarction [Unknown]
  - Cholecystitis infective [Recovering/Resolving]
  - Benign lymph node neoplasm [Unknown]
  - Asthenia [Unknown]
  - Cholelithiasis [Recovering/Resolving]
  - Fall [Unknown]
  - Lymph gland infection [Unknown]
  - Foot fracture [Unknown]
  - Device occlusion [Unknown]
  - Lymphadenitis [Unknown]
  - Feeling abnormal [Unknown]

NARRATIVE: CASE EVENT DATE: 201603
